FAERS Safety Report 19680753 (Version 3)
Quarter: 2023Q2

REPORT INFORMATION
  Report Type: Spontaneous
  Country: DK (occurrence: DK)
  Receive Date: 20210810
  Receipt Date: 20230403
  Transmission Date: 20230722
  Serious: Yes (Other)
  Sender: FDA-Public Use
  Company Number: DK-PFIZER INC-2021144069

PATIENT
  Age: 57 Year
  Sex: Female

DRUGS (7)
  1. METHOTREXATE [Suspect]
     Active Substance: METHOTREXATE
     Indication: Small cell lung cancer
     Dosage: UNK, CYCLIC
     Route: 065
  2. DOXORUBICIN [Suspect]
     Active Substance: DOXORUBICIN
     Indication: Small cell lung cancer
     Dosage: UNK, CYCLIC
     Route: 065
  3. CYCLOPHOSPHAMIDE [Suspect]
     Active Substance: CYCLOPHOSPHAMIDE
     Indication: Small cell lung cancer
     Dosage: 1000 MILLIGRAM/SQ. METER,CYCLE(1000 MG/M2, CYCLIC
     Route: 042
  4. LOMUSTINE [Suspect]
     Active Substance: LOMUSTINE
     Indication: Small cell lung cancer
     Dosage: 70 MILLIGRAM/SQ. METER, CYCLE (70 MG/M2, CYC
     Route: 048
  5. VEPESID [Suspect]
     Active Substance: ETOPOSIDE
     Indication: Small cell lung cancer
     Dosage: UNK, CYCLIC
     Route: 065
  6. VINCRISTINE SULFATE [Suspect]
     Active Substance: VINCRISTINE SULFATE
     Indication: Small cell lung cancer
     Dosage: 1.3 MILLIGRAM/SQ. METER, CYCLE (1.3 MG/M2, DAILY
     Route: 042
  7. VINCRISTINE SULFATE [Suspect]
     Active Substance: VINCRISTINE SULFATE
     Dosage: 1.3 MILLIGRAM/SQ. METER, CYCLE(1.3 MG/M2
     Route: 042

REACTIONS (2)
  - Acute myeloid leukaemia [Not Recovered/Not Resolved]
  - Second primary malignancy [Not Recovered/Not Resolved]
